FAERS Safety Report 17523742 (Version 4)
Quarter: 2020Q3

REPORT INFORMATION
  Report Type: Report from Study
  Country: None (occurrence: US)
  Receive Date: 20200311
  Receipt Date: 20200807
  Transmission Date: 20201102
  Serious: No
  Sender: FDA-Public Use
  Company Number: US-ABBVIE-20K-163-3304115-00

PATIENT
  Sex: Female
  Weight: 115.77 kg

DRUGS (1)
  1. HUMIRA [Suspect]
     Active Substance: ADALIMUMAB
     Indication: RHEUMATOID ARTHRITIS
     Route: 058

REACTIONS (5)
  - Fibromyalgia [Unknown]
  - Pain in extremity [Unknown]
  - General physical health deterioration [Not Recovered/Not Resolved]
  - Eye disorder [Unknown]
  - Diabetes mellitus [Unknown]
